FAERS Safety Report 18688693 (Version 2)
Quarter: 2021Q3

REPORT INFORMATION
  Report Type: Spontaneous
  Country: US (occurrence: US)
  Receive Date: 20201231
  Receipt Date: 20210805
  Transmission Date: 20211014
  Serious: No
  Sender: FDA-Public Use
  Company Number: US-SA-2020SA319271

PATIENT
  Age: 54 Year
  Sex: Male

DRUGS (1)
  1. DUPIXENT [Suspect]
     Active Substance: DUPILUMAB
     Indication: DERMATITIS ATOPIC
     Dosage: 300 MG,OTHER
     Route: 058
     Dates: start: 20200614

REACTIONS (2)
  - Drug ineffective [Unknown]
  - Fungal skin infection [Unknown]

NARRATIVE: CASE EVENT DATE: 20201201
